FAERS Safety Report 5054546-6 (Version None)
Quarter: 2006Q3

REPORT INFORMATION
  Report Type: 
  Country: None (occurrence: None)
  Receive Date: 20060714
  Receipt Date: 20060628
  Transmission Date: 20061208
  Serious: Yes (Other)
  Sender: FDA-Public Use
  Company Number: GXKR2006JP03957

PATIENT
  Age: 85 Year
  Sex: Male

DRUGS (1)
  1. METHYLPREDNISOLONE [Suspect]
     Indication: INTERSTITIAL LUNG DISEASE
     Dosage: 500 MG

REACTIONS (1)
  - PNEUMOMEDIASTINUM [None]
